FAERS Safety Report 14706549 (Version 1)
Quarter: 2018Q2

REPORT INFORMATION
  Report Type: Spontaneous
  Country: GB (occurrence: GB)
  Receive Date: 20180402
  Receipt Date: 20180402
  Transmission Date: 20180711
  Serious: Yes (Other)
  Sender: FDA-Public Use
  Company Number: GB-009507513-1803GBR010100

PATIENT
  Age: 68 Year
  Sex: Male
  Weight: 95.25 kg

DRUGS (4)
  1. CALCITRIOL. [Concomitant]
     Active Substance: CALCITRIOL
  2. TAMSULOSIN HYDROCHLORIDE. [Concomitant]
     Active Substance: TAMSULOSIN HYDROCHLORIDE
  3. DOVOBET [Concomitant]
     Active Substance: BETAMETHASONE\CALCIPOTRIENE
  4. FINASTERIDE. [Suspect]
     Active Substance: FINASTERIDE
     Indication: PROSTATOMEGALY
     Dosage: 5 MG, UNK
     Route: 048
     Dates: start: 20170802, end: 20170805

REACTIONS (5)
  - Scab [Not Recovered/Not Resolved]
  - Blood blister [Not Recovered/Not Resolved]
  - Rash [Not Recovered/Not Resolved]
  - Mouth ulceration [Not Recovered/Not Resolved]
  - Penile pain [Not Recovered/Not Resolved]

NARRATIVE: CASE EVENT DATE: 20170804
